FAERS Safety Report 4439484-1 (Version None)
Quarter: 2004Q3

REPORT INFORMATION
  Report Type: 
  Country: None (occurrence: None)
  Receive Date: 20040901
  Receipt Date: 20040901
  Transmission Date: 20050211
  Serious: Yes (Hospitalization)
  Sender: FDA-Public Use
  Company Number: None

PATIENT
  Age: 68 Year
  Sex: Female
  Weight: 90.7194 kg

DRUGS (3)
  1. REGLAN [Suspect]
     Indication: NAUSEA
     Dates: start: 20031209, end: 20031212
  2. IMIPENEM [Suspect]
     Indication: WHITE BLOOD CELL COUNT INCREASED
  3. TIGAN [Suspect]
     Indication: NAUSEA

REACTIONS (1)
  - DYSTONIA [None]
